FAERS Safety Report 17507842 (Version 2)
Quarter: 2020Q1

REPORT INFORMATION
  Report Type: Spontaneous
  Country: JP (occurrence: JP)
  Receive Date: 20200306
  Receipt Date: 20200326
  Transmission Date: 20200409
  Serious: Yes (Other)
  Sender: FDA-Public Use
  Company Number: JP-AMGEN-JPNSP2020036550

PATIENT
  Age: 76 Year
  Sex: Female

DRUGS (6)
  1. EVENITY [Suspect]
     Active Substance: ROMOSOZUMAB-AQQG
     Indication: PRODUCT USED FOR UNKNOWN INDICATION
     Dosage: 210 MILLIGRAM
     Route: 058
     Dates: start: 2019
  2. OLUMIANT [Concomitant]
     Active Substance: BARICITINIB
     Dosage: UNK
  3. PREDONINE [Suspect]
     Active Substance: PREDNISOLONE
     Indication: PRODUCT USED FOR UNKNOWN INDICATION
     Dosage: 2 MILLIGRAM, QD
     Route: 065
  4. UNASYN [SULTAMICILLIN TOSILATE] [Concomitant]
     Active Substance: SULTAMICILLIN TOSYLATE
     Dosage: UNK
     Dates: start: 202001
  5. SAWACILLIN [Concomitant]
     Active Substance: AMOXICILLIN
     Dosage: UNK
     Dates: start: 20200128
  6. UNASYN S [Concomitant]
     Active Substance: AMPICILLIN SODIUM\SULBACTAM SODIUM
     Dosage: UNK
     Dates: start: 202001

REACTIONS (3)
  - Osteomyelitis [Recovered/Resolved]
  - Osteonecrosis of jaw [Unknown]
  - Tooth fracture [Unknown]

NARRATIVE: CASE EVENT DATE: 202001
